FAERS Safety Report 22173356 (Version 2)
Quarter: 2023Q2

REPORT INFORMATION
  Report Type: Spontaneous
  Country: NL (occurrence: None)
  Receive Date: 20230404
  Receipt Date: 20230410
  Transmission Date: 20230722
  Serious: Yes (Death, Other)
  Sender: FDA-Public Use
  Company Number: 2023A072306

PATIENT
  Age: 57 Year
  Sex: Female

DRUGS (3)
  1. OSIMERTINIB [Suspect]
     Active Substance: OSIMERTINIB
     Indication: Non-small cell lung cancer stage IIIA
     Dosage: UNK
     Route: 048
  2. GEFITINIB [Suspect]
     Active Substance: GEFITINIB
     Indication: Non-small cell lung cancer stage IIIA
     Dosage: UNK
     Route: 048
  3. ERLOTINIB [Suspect]
     Active Substance: ERLOTINIB
     Indication: Non-small cell lung cancer stage IIIA
     Dosage: UNK

REACTIONS (4)
  - Drug resistance [Fatal]
  - Malignant neoplasm progression [Fatal]
  - Acquired gene mutation [Fatal]
  - Drug ineffective [Fatal]
